FAERS Safety Report 9852544 (Version 1)
Quarter: 2014Q1

REPORT INFORMATION
  Report Type: Spontaneous
  Country: FR (occurrence: FR)
  Receive Date: 20140129
  Receipt Date: 20140129
  Transmission Date: 20141002
  Serious: Yes (Hospitalization)
  Sender: FDA-Public Use
  Company Number: FR-BRISTOL-MYERS SQUIBB COMPANY-20078598

PATIENT
  Age: 48 Year
  Sex: Female

DRUGS (6)
  1. BARACLUDE TABS 1.0 MG [Suspect]
     Indication: CHRONIC HEPATITIS B
     Dosage: 1 DF : 1 TABLET?FILM COATED
     Route: 048
     Dates: start: 20110915, end: 20120125
  2. VESANOID [Suspect]
     Indication: CHRONIC HEPATITIS B
     Route: 048
     Dates: start: 20111027, end: 20120125
  3. METHOTREXATE [Suspect]
     Route: 048
     Dates: start: 20111221, end: 20120125
  4. PURINETHOL [Suspect]
     Dosage: 1 TABLET
     Route: 048
     Dates: start: 20111221, end: 20120125
  5. ZELITREX [Suspect]
     Route: 048
     Dates: start: 20111221, end: 20120125
  6. BACTRIM [Suspect]
     Route: 048
     Dates: start: 20111221, end: 20120125

REACTIONS (2)
  - Hepatic failure [Recovering/Resolving]
  - Hepatitis [Recovering/Resolving]
